FAERS Safety Report 17583396 (Version 1)
Quarter: 2020Q1

REPORT INFORMATION
  Report Type: Spontaneous
  Country: JP (occurrence: JP)
  Receive Date: 20200326
  Receipt Date: 20200326
  Transmission Date: 20200409
  Serious: Yes (Death, Hospitalization, Other)
  Sender: FDA-Public Use
  Company Number: JP-SUN PHARMACEUTICAL INDUSTRIES LTD-2020RR-241587

PATIENT
  Age: 62 Year
  Sex: Female

DRUGS (4)
  1. TS-1 [Suspect]
     Active Substance: GIMERACIL\OTERACIL\TEGAFUR
     Indication: ADENOCARCINOMA GASTRIC
     Dosage: SOX THERAPY
     Route: 065
  2. TS-1 [Suspect]
     Active Substance: GIMERACIL\OTERACIL\TEGAFUR
     Indication: CHEMOTHERAPY
  3. OXALIPLATIN. [Suspect]
     Active Substance: OXALIPLATIN
     Indication: CARCINOID TUMOUR OF THE STOMACH
  4. OXALIPLATIN. [Suspect]
     Active Substance: OXALIPLATIN
     Indication: CHEMOTHERAPY
     Dosage: SOX THERAPY
     Route: 065

REACTIONS (2)
  - Drug ineffective [Unknown]
  - Disease progression [Fatal]
